FAERS Safety Report 13422638 (Version 1)
Quarter: 2017Q2

REPORT INFORMATION
  Report Type: Spontaneous
  Country: US (occurrence: US)
  Receive Date: 20170407
  Receipt Date: 20170407
  Transmission Date: 20170830
  Serious: No
  Sender: FDA-Public Use
  Company Number: None

PATIENT
  Age: 50 Year
  Sex: Female

DRUGS (1)
  1. ENBREL [Suspect]
     Active Substance: ETANERCEPT
     Indication: PSORIASIS
     Route: 058
     Dates: start: 20170328, end: 20170405

REACTIONS (3)
  - Injection site rash [None]
  - Injection site reaction [None]
  - Injection site pruritus [None]

NARRATIVE: CASE EVENT DATE: 20170326
